FAERS Safety Report 11456529 (Version 2)
Quarter: 2015Q3

REPORT INFORMATION
  Report Type: Spontaneous
  Country: US (occurrence: None)
  Receive Date: 20150903
  Receipt Date: 20150916
  Transmission Date: 20151125
  Serious: Yes (Other)
  Sender: FDA-Public Use
  Company Number: ADR-2015-01494

PATIENT
  Age: 64 Year
  Sex: Male

DRUGS (2)
  1. BACLOFEN INTRATHECAL 350 MCG/ML [Suspect]
     Active Substance: BACLOFEN
     Dosage: 96.44 MCG/DAY
  2. FENTANYL INTRATHECAL 1000 MCG/ML [Suspect]
     Active Substance: FENTANYL
     Dosage: 275.5 MCG/DAY

REACTIONS (4)
  - Headache [None]
  - Post lumbar puncture syndrome [None]
  - Rash [None]
  - Tooth infection [None]
